FAERS Safety Report 7867460-5 (Version None)
Quarter: 2011Q4

REPORT INFORMATION
  Report Type: 
  Country: None (occurrence: None)
  Receive Date: 20111028
  Receipt Date: 20111018
  Transmission Date: 20120403
  Serious: Yes (Other)
  Sender: FDA-Public Use
  Company Number: US-BAYER-2011-103112

PATIENT
  Age: 31 Year
  Sex: Female
  Weight: 93 kg

DRUGS (4)
  1. YAZ [Suspect]
     Indication: CONTRACEPTION
     Dosage: UNK
     Dates: start: 20081101, end: 20090901
  2. SYNTHROID [Concomitant]
     Indication: HYPOTHYROIDISM
     Dosage: UNK
     Dates: start: 20030301
  3. LEVOTHYROXINE SODIUM [Concomitant]
     Dosage: 150 MCG/24HR, QOD
     Route: 048
  4. LEVOTHYROXINE SODIUM [Concomitant]
     Dosage: 137 MCG/24HR, QOD

REACTIONS (1)
  - PELVIC VENOUS THROMBOSIS [None]
